FAERS Safety Report 13528740 (Version 1)
Quarter: 2017Q2

REPORT INFORMATION
  Report Type: Spontaneous
  Country: US (occurrence: US)
  Receive Date: 20170509
  Receipt Date: 20170509
  Transmission Date: 20170830
  Serious: Yes (Other)
  Sender: FDA-Public Use
  Company Number: US-BAYER-2017-073455

PATIENT
  Age: 10 Year
  Sex: Female

DRUGS (1)
  1. DR. SCHOLLS CLEAR AWAY WART REMOVER PLANTAR [Suspect]
     Active Substance: SALICYLIC ACID
     Indication: SKIN DISORDER
     Route: 061
     Dates: start: 20170414, end: 20170416

REACTIONS (2)
  - Application site ulcer [Not Recovered/Not Resolved]
  - Application site pain [Not Recovered/Not Resolved]

NARRATIVE: CASE EVENT DATE: 20170416
